FAERS Safety Report 7432858-6 (Version None)
Quarter: 2011Q2

REPORT INFORMATION
  Report Type: 
  Country: None (occurrence: None)
  Receive Date: 20110422
  Receipt Date: 20110413
  Transmission Date: 20111010
  Serious: Yes (Other)
  Sender: FDA-Public Use
  Company Number: US-ASTRAZENECA-2010SE15814

PATIENT
  Age: 51 Year
  Sex: Female
  Weight: 90.7 kg

DRUGS (15)
  1. LOSARTAN POTASSIUM [Concomitant]
     Indication: HYPERTENSION
  2. DALMANE [Concomitant]
  3. SEROQUEL [Suspect]
     Route: 048
  4. WATER PILL [Concomitant]
     Indication: HYPERTENSION
  5. TRAZODONE HCL [Concomitant]
  6. GABAPENTIN [Concomitant]
  7. SEROQUEL [Suspect]
     Route: 048
  8. CRESTOR [Concomitant]
  9. KLONOPIN [Concomitant]
  10. NEXIUM [Suspect]
     Route: 048
  11. PRILOSEC OTC [Suspect]
     Route: 048
  12. NEURONTIN [Concomitant]
  13. CYMBALTA [Concomitant]
  14. SEROQUEL [Suspect]
     Indication: BIPOLAR DISORDER
     Route: 048
     Dates: start: 20060101
  15. PHENOBARBITAL [Concomitant]

REACTIONS (21)
  - INSOMNIA [None]
  - SOMNOLENCE [None]
  - INTENTIONAL SELF-INJURY [None]
  - JOINT SWELLING [None]
  - WEIGHT DECREASED [None]
  - VIOLENCE-RELATED SYMPTOM [None]
  - DECREASED APPETITE [None]
  - BACK PAIN [None]
  - DISTURBANCE IN ATTENTION [None]
  - MANIA [None]
  - PANIC REACTION [None]
  - EMOTIONAL DISORDER [None]
  - DRUG DOSE OMISSION [None]
  - ADVERSE EVENT [None]
  - SUICIDAL IDEATION [None]
  - GASTROOESOPHAGEAL REFLUX DISEASE [None]
  - ANXIETY [None]
  - ANGER [None]
  - DRUG WITHDRAWAL SYNDROME [None]
  - WRONG DRUG ADMINISTERED [None]
  - DRUG INEFFECTIVE [None]
